FAERS Safety Report 22047319 (Version 1)
Quarter: 2023Q1

REPORT INFORMATION
  Report Type: Spontaneous
  Country: JP (occurrence: JP)
  Receive Date: 20230301
  Receipt Date: 20230301
  Transmission Date: 20230418
  Serious: Yes (Hospitalization)
  Sender: FDA-Public Use
  Company Number: JP-MTPC-MTPC2023-0005042

PATIENT
  Age: 54 Year
  Sex: Female

DRUGS (9)
  1. EDARAVONE [Suspect]
     Active Substance: EDARAVONE
     Indication: Cerebrovascular stenosis
     Dosage: 60 MILLIGRAM, QD
     Route: 041
  2. EDARAVONE [Suspect]
     Active Substance: EDARAVONE
     Indication: Cerebral infarction
  3. HYDROCORTISONE SODIUM SUCCINATE [Suspect]
     Active Substance: HYDROCORTISONE SODIUM SUCCINATE
     Indication: Central nervous system vasculitis
     Dosage: 1000 MILLIGRAM, QD
     Route: 041
  4. HYDROCORTISONE SODIUM SUCCINATE [Suspect]
     Active Substance: HYDROCORTISONE SODIUM SUCCINATE
     Indication: Vasculitis
  5. ASPIRIN [Concomitant]
     Active Substance: ASPIRIN
     Indication: Cerebrovascular stenosis
     Dosage: 200 MILLIGRAM, QD
     Route: 065
  6. ASPIRIN [Concomitant]
     Active Substance: ASPIRIN
     Indication: Cerebral infarction
  7. CLOPIDOGREL [Concomitant]
     Active Substance: CLOPIDOGREL BISULFATE
     Indication: Cerebrovascular stenosis
     Dosage: 75 MILLIGRAM, QD
     Route: 065
  8. CLOPIDOGREL [Concomitant]
     Active Substance: CLOPIDOGREL BISULFATE
     Indication: Cerebral infarction
  9. NICARDIPINE HYDROCHLORIDE [Concomitant]
     Active Substance: NICARDIPINE HYDROCHLORIDE
     Indication: Reversible cerebral vasoconstriction syndrome
     Route: 065

REACTIONS (8)
  - Reversible cerebral vasoconstriction syndrome [Recovering/Resolving]
  - Vasculitis [Recovering/Resolving]
  - Vasculitis [Recovering/Resolving]
  - Balint^s syndrome [Recovering/Resolving]
  - Seizure [Recovering/Resolving]
  - Cerebral haemorrhage [Recovering/Resolving]
  - Subdural haematoma [Recovering/Resolving]
  - Subarachnoid haemorrhage [Recovering/Resolving]
